FAERS Safety Report 6395314-2 (Version None)
Quarter: 2009Q4

REPORT INFORMATION
  Report Type: 
  Country: None (occurrence: None)
  Receive Date: 20091009
  Receipt Date: 20091006
  Transmission Date: 20100525
  Serious: Yes (Hospitalization, Other)
  Sender: FDA-Public Use
  Company Number: B0511644A

PATIENT
  Sex: Female
  Weight: 20.5 kg

DRUGS (6)
  1. COMBIVIR [Suspect]
     Indication: HIV INFECTION
     Route: 065
     Dates: start: 20080107, end: 20080304
  2. EFAVIRENZ [Suspect]
     Indication: HIV INFECTION
     Dosage: 300MG PER DAY
     Route: 065
     Dates: start: 20080107
  3. ABACAVIR [Suspect]
     Indication: HIV INFECTION
     Dosage: 300MG PER DAY
     Route: 065
     Dates: start: 20080107
  4. COTRIM [Suspect]
     Dates: start: 20071210, end: 20080207
  5. MULTI-VITAMIN [Concomitant]
  6. VALPROATE SODIUM [Concomitant]
     Dates: start: 20080107

REACTIONS (9)
  - ABDOMINAL PAIN [None]
  - BRONCHOPNEUMONIA [None]
  - COUGH [None]
  - GAIT DISTURBANCE [None]
  - HAEMOGLOBIN DECREASED [None]
  - NEUROPATHY PERIPHERAL [None]
  - NEUTROPENIA [None]
  - PAIN IN EXTREMITY [None]
  - PYREXIA [None]
